FAERS Safety Report 5577689-7 (Version None)
Quarter: 2007Q4

REPORT INFORMATION
  Report Type: 
  Country: None (occurrence: None)
  Receive Date: 20071130
  Receipt Date: 20070918
  Transmission Date: 20080405
  Serious: No
  Sender: FDA-Public Use
  Company Number: US200704004575

PATIENT
  Age: 59 Year
  Sex: Female
  Weight: 99.8 kg

DRUGS (3)
  1. BYETTA [Suspect]
     Indication: TYPE 2 DIABETES MELLITUS
     Dosage: 5 UG, 2/D, SUBCUTANEOUS ; 10 UG, 2/D, SUBCUTANEOUS
     Route: 058
     Dates: start: 20050101, end: 20050101
  2. BYETTA [Suspect]
     Indication: TYPE 2 DIABETES MELLITUS
     Dosage: 5 UG, 2/D, SUBCUTANEOUS ; 10 UG, 2/D, SUBCUTANEOUS
     Route: 058
     Dates: start: 20050101
  3. AVANDIA [Concomitant]

REACTIONS (10)
  - DECREASED APPETITE [None]
  - HERPES ZOSTER [None]
  - INJECTION SITE PAIN [None]
  - INJECTION SITE RASH [None]
  - JOINT SWELLING [None]
  - PAIN [None]
  - RASH [None]
  - SKIN DISORDER [None]
  - URTICARIA [None]
  - WEIGHT DECREASED [None]
